FAERS Safety Report 8837156 (Version 1)
Quarter: 2012Q4

REPORT INFORMATION
  Report Type: 
  Country: MX (occurrence: MX)
  Receive Date: 20121012
  Receipt Date: 20121012
  Transmission Date: 20130627
  Serious: Yes (Hospitalization)
  Sender: FDA-Public Use
  Company Number: PHHY2012MX090575

PATIENT
  Age: 78 Year
  Sex: Female

DRUGS (2)
  1. CO-DIOVAN [Suspect]
     Indication: HYPERTENSION
     Dosage: 0.5 DF (160/12.5 mg), Per day
     Dates: start: 200901
  2. METFORMIN [Concomitant]
     Dosage: 1 DF, Per day
     Dates: start: 201110

REACTIONS (2)
  - Cataract [Not Recovered/Not Resolved]
  - Wrong technique in drug usage process [Not Recovered/Not Resolved]
